FAERS Safety Report 6931288-0 (Version None)
Quarter: 2010Q3

REPORT INFORMATION
  Report Type: 
  Country: None (occurrence: None)
  Receive Date: 20100816
  Receipt Date: 20100804
  Transmission Date: 20110219
  Serious: Yes (Death, Other)
  Sender: FDA-Public Use
  Company Number: 130-20785-10080458

PATIENT
  Age: 62 Year
  Sex: Male

DRUGS (1)
  1. THALIDOMIDE [Suspect]
     Indication: HISTIOCYTOSIS
     Dosage: 200 MG, ORAL, 100 MEQ, ORAL
     Route: 048

REACTIONS (3)
  - ACUTE MONOCYTIC LEUKAEMIA [None]
  - GENERAL PHYSICAL HEALTH DETERIORATION [None]
  - RESPIRATORY FAILURE [None]
